FAERS Safety Report 8492576 (Version 9)
Quarter: 2012Q4

REPORT INFORMATION
  Report Type: Report from Study
  Country: DE (occurrence: DE)
  Receive Date: 20120403
  Receipt Date: 20121214
  Transmission Date: 20130627
  Serious: Yes (Hospitalization, Other)
  Sender: FDA-Public Use
  Company Number: DE-CELGENEUS-062-21660-12031374

PATIENT
  Age: 75 Year
  Sex: Female
  Weight: 77 kg

DRUGS (15)
  1. ABRAXANE [Suspect]
     Indication: BREAST CANCER
     Route: 041
     Dates: start: 20120223, end: 20120315
  2. ABRAXANE [Suspect]
     Route: 041
     Dates: start: 20120412, end: 20120425
  3. CAPECITABINE [Suspect]
     Indication: BREAST CANCER
     Dosage: 8000 Milligram
     Route: 048
     Dates: start: 20120223, end: 20120307
  4. CAPECITABINE [Suspect]
     Dosage: 6000 Milligram
     Route: 048
     Dates: start: 20120315, end: 20120405
  5. CAPECITABINE [Suspect]
     Route: 048
     Dates: start: 20120412, end: 20120425
  6. ACETYLSALICYLIC ACID [Concomitant]
     Indication: DRUG USE FOR UNKNOWN INDICATION
     Dosage: 100 Milligram
     Route: 065
  7. L THYROXIN [Concomitant]
     Indication: DRUG USE FOR UNKNOWN INDICATION
     Dosage: 50 Microgram
     Route: 065
  8. SIMVASTATIN [Concomitant]
     Indication: DRUG USE FOR UNKNOWN INDICATION
     Dosage: 10 Milligram
     Route: 065
  9. SIMVASTATIN [Concomitant]
     Dosage: 20 Milligram
     Route: 065
  10. RAMIPRIL [Concomitant]
     Indication: DRUG USE FOR UNKNOWN INDICATION
     Dosage: 2.5 Milligram
     Route: 065
  11. BISOPROLOL [Concomitant]
     Indication: DRUG USE FOR UNKNOWN INDICATION
     Dosage: 5 Milligram
     Route: 065
  12. DELIX [Concomitant]
     Indication: DRUG USE FOR UNKNOWN INDICATION
     Dosage: 2.5 Milligram
     Route: 065
  13. CYCLOPHOSPHAMIDE [Concomitant]
     Indication: BREAST CANCER
     Route: 065
  14. 5-FU [Concomitant]
     Indication: BREAST CANCER
     Route: 065
  15. METHOTREXATE [Concomitant]
     Indication: BREAST CANCER
     Route: 065

REACTIONS (5)
  - Syncope [Recovered/Resolved]
  - Diarrhoea [Recovered/Resolved]
  - Infection [Recovered/Resolved]
  - Infection [Recovered/Resolved]
  - General physical health deterioration [Recovered/Resolved]
